FAERS Safety Report 5162132-2 (Version None)
Quarter: 2006Q4

REPORT INFORMATION
  Report Type: 
  Country: None (occurrence: None)
  Receive Date: 20061116
  Receipt Date: 20061110
  Transmission Date: 20070319
  Serious: Yes (Hospitalization, Disabling)
  Sender: FDA-Public Use
  Company Number: 2006-149899-NL

PATIENT
  Age: 21 Year
  Sex: Female

DRUGS (1)
  1. ETONGESTREL (BATCH # 694200/726602) [Suspect]
     Indication: CONTRACEPTION
     Dosage: DF,
     Dates: start: 20051102, end: 20061101

REACTIONS (4)
  - DRUG EXPOSURE DURING PREGNANCY [None]
  - HYPEREMESIS GRAVIDARUM [None]
  - PREGNANCY WITH IMPLANT CONTRACEPTIVE [None]
  - WEIGHT DECREASED [None]
